FAERS Safety Report 14558192 (Version 5)
Quarter: 2018Q2

REPORT INFORMATION
  Report Type: Spontaneous
  Country: FR (occurrence: FR)
  Receive Date: 20180221
  Receipt Date: 20180524
  Transmission Date: 20180711
  Serious: Yes (Hospitalization, Other)
  Sender: FDA-Public Use
  Company Number: PHHY2017FR201011

PATIENT
  Age: 84 Year
  Sex: Female
  Weight: 68 kg

DRUGS (10)
  1. NEBIVOLOL. [Suspect]
     Active Substance: NEBIVOLOL
     Indication: HYPERTENSION
     Dosage: UNK
     Route: 048
  2. ALDACTAZINE [Concomitant]
     Active Substance: ALTHIAZIDE\SPIRONOLACTONE
     Indication: HYPERTENSION
     Dosage: 1 DF, QD
     Route: 048
     Dates: start: 2016
  3. ASPIRINE PROTECT [Concomitant]
     Active Substance: ASPIRIN
     Indication: STENT PLACEMENT
  4. PERINDOPRIL ARGININE BIOGARAN [Suspect]
     Active Substance: PERINDOPRIL ARGININE
     Indication: HYPERTENSION
     Dosage: 5 MG, QD IN THE EVENING
     Route: 048
     Dates: start: 2016
  5. TRAMADOL/PARACETAMOL [Suspect]
     Active Substance: ACETAMINOPHEN\TRAMADOL
     Indication: ARTHRALGIA
     Dosage: UNK
     Route: 048
  6. SPIRONOLACTONE. [Suspect]
     Active Substance: SPIRONOLACTONE
     Dosage: 25 MG, PRN IN THE MORNING
     Route: 048
  7. RILMENIDINE [Suspect]
     Active Substance: RILMENIDINE
     Indication: HYPERTENSION
     Dosage: UNK
     Route: 048
  8. NISISCO [Concomitant]
     Active Substance: HYDROCHLOROTHIAZIDE\VALSARTAN
     Indication: HYPERTENSION
     Dosage: UNK
     Route: 065
  9. SPIRONOLACTONE. [Suspect]
     Active Substance: SPIRONOLACTONE
     Indication: HYPERTENSION
     Dosage: 25 MG, PRN
     Route: 048
     Dates: start: 20160101
  10. ASPIRINE PROTECT [Concomitant]
     Active Substance: ASPIRIN
     Indication: POSTOPERATIVE CARE
     Dosage: 100 MG, QD
     Route: 065

REACTIONS (18)
  - Arthralgia [Unknown]
  - Nausea [Unknown]
  - Urine output increased [Not Recovered/Not Resolved]
  - Tachycardia [Unknown]
  - Fatigue [Unknown]
  - Dyspnoea [Unknown]
  - Vasculitis [Unknown]
  - Labelled drug-drug interaction medication error [Unknown]
  - Abdominal pain [Unknown]
  - Palpitations [Unknown]
  - Drug ineffective [Unknown]
  - Myalgia [Unknown]
  - Product use issue [Not Recovered/Not Resolved]
  - Feeling hot [Unknown]
  - Diarrhoea [Unknown]
  - Acute kidney injury [Unknown]
  - Cough [Unknown]
  - Asthma [Unknown]

NARRATIVE: CASE EVENT DATE: 2016
